FAERS Safety Report 6706333-8 (Version None)
Quarter: 2010Q2

REPORT INFORMATION
  Report Type: 
  Country: None (occurrence: None)
  Receive Date: 20100430
  Receipt Date: 20100430
  Transmission Date: 20101027
  Serious: Yes (Other)
  Sender: FDA-Public Use
  Company Number: None

PATIENT
  Age: 55 Year
  Sex: Female
  Weight: 83.9154 kg

DRUGS (1)
  1. MIDODRINE HYDROCHLORIDE [Suspect]
     Indication: AUTONOMIC NERVOUS SYSTEM IMBALANCE
     Dosage: 10MG 3 TIMES DAY PO
     Route: 048
     Dates: start: 20100120, end: 20100228

REACTIONS (4)
  - ACTIVITIES OF DAILY LIVING IMPAIRED [None]
  - LIBIDO DECREASED [None]
  - NIPPLE PAIN [None]
  - VASOCONSTRICTION [None]
